FAERS Safety Report 19257275 (Version 1)
Quarter: 2021Q2

REPORT INFORMATION
  Report Type: Spontaneous
  Country: US (occurrence: US)
  Receive Date: 20210513
  Receipt Date: 20210513
  Transmission Date: 20210717
  Serious: No
  Sender: FDA-Public Use
  Company Number: US-ASTRAZENECA-2021A329122

PATIENT
  Sex: Female
  Weight: 99.8 kg

DRUGS (1)
  1. FASENRA [Suspect]
     Active Substance: BENRALIZUMAB
     Indication: ASTHMA
     Dosage: 30MG/ML EVERY EIGHT WEEKS
     Route: 058
     Dates: start: 20210211

REACTIONS (7)
  - Influenza like illness [Unknown]
  - Fall [Unknown]
  - Neck pain [Unknown]
  - Dyspnoea [Unknown]
  - Hand fracture [Unknown]
  - Wheezing [Unknown]
  - Cough [Unknown]
